FAERS Safety Report 13832530 (Version 1)
Quarter: 2017Q3

REPORT INFORMATION
  Report Type: Spontaneous
  Country: US (occurrence: US)
  Receive Date: 20170803
  Receipt Date: 20170803
  Transmission Date: 20171127
  Serious: No
  Sender: FDA-Public Use
  Company Number: US-ROCHE-1279825

PATIENT
  Sex: Female

DRUGS (4)
  1. DILAUDID [Concomitant]
     Active Substance: HYDROMORPHONE HYDROCHLORIDE
     Indication: PAIN
  2. APAP [Concomitant]
     Active Substance: ACETAMINOPHEN
     Indication: SLEEP DISORDER
  3. BONIVA [Suspect]
     Active Substance: IBANDRONATE SODIUM
     Indication: OSTEOPENIA
     Route: 065
  4. OXYCODONE [Concomitant]
     Active Substance: OXYCODONE
     Indication: PAIN

REACTIONS (5)
  - Narcolepsy [Unknown]
  - Pain [Unknown]
  - Tooth disorder [Unknown]
  - Hypersensitivity [Unknown]
  - Asthma [Unknown]
